FAERS Safety Report 17445957 (Version 6)
Quarter: 2020Q2

REPORT INFORMATION
  Report Type: Spontaneous
  Country: FR (occurrence: FR)
  Receive Date: 20200221
  Receipt Date: 20200611
  Transmission Date: 20200713
  Serious: Yes (Hospitalization, Other)
  Sender: FDA-Public Use
  Company Number: FR-MYLANLABS-2020M1018371

PATIENT
  Age: 86 Year
  Sex: Male
  Weight: 77 kg

DRUGS (22)
  1. BISOPROLOL [Suspect]
     Active Substance: BISOPROLOL
     Dosage: 1.25 MILLIGRAM, QD, DOSE INCREASED
     Route: 002
     Dates: start: 201911
  2. LASILIX                            /00032601/ [Suspect]
     Active Substance: FUROSEMIDE
     Dosage: 250 MG, QD
     Route: 002
     Dates: start: 20191013, end: 20191031
  3. FUROSEMIDE. [Suspect]
     Active Substance: FUROSEMIDE
     Dosage: DOSE DECREASED
     Route: 002
     Dates: start: 20191113, end: 201911
  4. TAFAMIDIS MEGLUMINE [Concomitant]
     Active Substance: TAFAMIDIS MEGLUMINE
     Indication: PRODUCT USED FOR UNKNOWN INDICATION
     Dosage: UNK
  5. LASILIX                            /00032601/ [Suspect]
     Active Substance: FUROSEMIDE
     Dosage: 80 MG, QD (DOSE DECREASED)
     Route: 002
     Dates: start: 20191113, end: 201911
  6. FUROSEMIDE. [Suspect]
     Active Substance: FUROSEMIDE
     Dosage: DOSE INCREASED (500 MG 1/2 PILL/DAY, 40 MG 1 PILL/DAY (IN CASE OF WEIGHT INCREASE
     Route: 002
     Dates: start: 201911
  7. CETIRIZINE [Concomitant]
     Active Substance: CETIRIZINE HYDROCHLORIDE
     Indication: PRURITUS
     Dosage: UNK
     Route: 065
     Dates: start: 20190822
  8. ALLOPURINOL. [Concomitant]
     Active Substance: ALLOPURINOL
     Indication: GOUT
     Dosage: UNK
     Dates: start: 20150127
  9. BISOPROLOL [Suspect]
     Active Substance: BISOPROLOL
     Indication: ATRIAL FIBRILLATION
     Dosage: 1.25 MILLIGRAM, QD
     Route: 002
     Dates: start: 20130211, end: 20191031
  10. LASILIX                            /00032601/ [Suspect]
     Active Substance: FUROSEMIDE
     Dosage: DOSE INCREASED (500 MG 1/2 PILL/DAY, 40 MG 1 PILL/DAY (IN
     Route: 002
     Dates: start: 201911
  11. FUROSEMIDE. [Suspect]
     Active Substance: FUROSEMIDE
     Dosage: 2 DOSAGE FORM, QD
     Route: 002
     Dates: start: 201911, end: 201911
  12. LASILIX                            /00032601/ [Suspect]
     Active Substance: FUROSEMIDE
     Dosage: 80 MG, QD (DOSE DECREASED)
     Route: 002
     Dates: start: 20191013, end: 201911
  13. COUMADIN [Concomitant]
     Active Substance: WARFARIN SODIUM
     Indication: ATRIAL FIBRILLATION
     Dosage: UNK UNK, UNK
     Route: 048
     Dates: start: 20130211, end: 201911
  14. ALFUZOSIN [Concomitant]
     Active Substance: ALFUZOSIN
     Indication: PROSTATIC ADENOMA
     Dosage: 1 DOSAGE FORM, QD
     Route: 048
     Dates: start: 20190822, end: 201911
  15. LASILIX                            /00032601/ [Suspect]
     Active Substance: FUROSEMIDE
     Indication: CARDIAC FAILURE
     Dosage: 250 MILLIGRAM, QD
     Route: 002
     Dates: start: 20140130, end: 20191031
  16. FUROSEMIDE. [Suspect]
     Active Substance: FUROSEMIDE
     Indication: CARDIAC FAILURE
     Dosage: 250 MILLIGRAM, QD
     Route: 002
     Dates: start: 20140130, end: 20191031
  17. FUROSEMIDE. [Suspect]
     Active Substance: FUROSEMIDE
     Dosage: UNKNOWN DOSE (DOSE DECREASED)
     Route: 002
     Dates: start: 20191113, end: 201911
  18. BISOPROLOL [Suspect]
     Active Substance: BISOPROLOL
     Dosage: 5 MILLIGRAM 0.5 DAY, DOSE INCREASED
     Route: 002
     Dates: start: 20191113, end: 201911
  19. LASILIX                            /00032601/ [Suspect]
     Active Substance: FUROSEMIDE
     Dosage: 2 DOSAGE FORM, QD
     Route: 002
     Dates: start: 201911, end: 201911
  20. COUMADIN [Concomitant]
     Active Substance: WARFARIN SODIUM
     Dosage: 1 DOSAGE FORM, QD
     Route: 048
     Dates: start: 201911
  21. TAFAMIDIS MEGLUMINE [Suspect]
     Active Substance: TAFAMIDIS MEGLUMINE
     Indication: CARDIAC AMYLOIDOSIS
     Dosage: 61 MILLIGRAM, QD
     Route: 048
     Dates: start: 20191017
  22. ALFUZOSIN [Concomitant]
     Active Substance: ALFUZOSIN
     Dosage: , 1 DOSAGE FORM, QD, LP (UNSPECIFIED)
     Route: 048
     Dates: start: 201911

REACTIONS (4)
  - Rales [Recovered/Resolved]
  - Dyspnoea [Recovered/Resolved]
  - Tachycardia [Recovered/Resolved]
  - Cardiac failure [Recovered/Resolved]

NARRATIVE: CASE EVENT DATE: 20191116
